FAERS Safety Report 14568861 (Version 1)
Quarter: 2018Q1

REPORT INFORMATION
  Report Type: Spontaneous
  Country: FR (occurrence: FR)
  Receive Date: 20180223
  Receipt Date: 20180223
  Transmission Date: 20180509
  Serious: Yes (Life-Threatening, Hospitalization, Other)
  Sender: FDA-Public Use
  Company Number: PHHY2016FR186103

PATIENT
  Sex: Male
  Weight: 60 kg

DRUGS (7)
  1. KEYTRUDA [Suspect]
     Active Substance: PEMBROLIZUMAB
     Dosage: 2 MG/KG, TOTAL
     Route: 041
     Dates: start: 20160209, end: 20160209
  2. OXYNORMORO [Concomitant]
     Active Substance: OXYCODONE HYDROCHLORIDE
     Indication: PAIN
     Dosage: 10 MG, PRN
     Route: 065
     Dates: start: 20160228
  3. LAROXYL [Concomitant]
     Active Substance: AMITRIPTYLINE HYDROCHLORIDE
     Indication: PAIN
     Dosage: 10 GTT, QPM
     Route: 065
     Dates: start: 20160226
  4. TRAMETINIB [Suspect]
     Active Substance: TRAMETINIB
     Indication: PRODUCT USED FOR UNKNOWN INDICATION
     Route: 065
  5. TAFINLAR [Suspect]
     Active Substance: DABRAFENIB MESYLATE
     Indication: PRODUCT USED FOR UNKNOWN INDICATION
     Route: 065
  6. KEYTRUDA [Suspect]
     Active Substance: PEMBROLIZUMAB
     Indication: MALIGNANT MELANOMA STAGE III
     Dosage: 2 MG/KG, QW
     Route: 041
     Dates: start: 20160118
  7. OXYCONTIN [Concomitant]
     Active Substance: OXYCODONE HYDROCHLORIDE
     Indication: PAIN
     Dosage: 60 MG, QD
     Route: 065
     Dates: start: 20160228

REACTIONS (20)
  - Oropharyngeal pain [Unknown]
  - Bacterial sepsis [Unknown]
  - Colitis [Recovered/Resolved with Sequelae]
  - Malignant neoplasm progression [Unknown]
  - Gastrointestinal necrosis [Unknown]
  - Type III immune complex mediated reaction [Unknown]
  - Condition aggravated [Unknown]
  - Cardiac arrest [Unknown]
  - Facial paralysis [Unknown]
  - Hyperhomocysteinaemia [Unknown]
  - Staphylococcal infection [Unknown]
  - Intestinal ischaemia [Unknown]
  - Pyrexia [Unknown]
  - Prerenal failure [Recovering/Resolving]
  - Septic shock [Recovering/Resolving]
  - Toxicity to various agents [Unknown]
  - Short-bowel syndrome [Unknown]
  - Parotid gland enlargement [Unknown]
  - Neuropathy peripheral [Unknown]
  - Hyperproteinaemia [Unknown]

NARRATIVE: CASE EVENT DATE: 2016
